FAERS Safety Report 9999650 (Version 1)
Quarter: 2014Q1

REPORT INFORMATION
  Report Type: Spontaneous
  Country: US (occurrence: US)
  Receive Date: 20140312
  Receipt Date: 20140312
  Transmission Date: 20141002
  Serious: Yes (Other)
  Sender: FDA-Public Use
  Company Number: US-BAYER-2014-033056

PATIENT
  Sex: Male

DRUGS (2)
  1. ALEVE CAPLET [Suspect]
     Indication: ANALGESIC THERAPY
     Dosage: 2 DF, ONCE
     Route: 048
     Dates: start: 1999, end: 1999
  2. ALKA-SELTZER PLUS SPARKLING ORIGINAL COLD FORMULA [Suspect]
     Dosage: 1 DF, PRN
     Route: 048

REACTIONS (4)
  - Mental impairment [Recovered/Resolved]
  - Disturbance in attention [Recovered/Resolved]
  - Local swelling [Recovered/Resolved]
  - Off label use [None]
